FAERS Safety Report 4806634-4 (Version None)
Quarter: 2005Q4

REPORT INFORMATION
  Report Type: 
  Country: None (occurrence: None)
  Receive Date: 20051019
  Receipt Date: 20051005
  Transmission Date: 20060501
  Serious: Yes (Hospitalization, Other)
  Sender: FDA-Public Use
  Company Number: USA021123596

PATIENT
  Age: 74 Year
  Sex: Female

DRUGS (7)
  1. EVISTA [Suspect]
     Indication: SPINAL COLUMN STENOSIS
     Dosage: 60 MG DAY
     Dates: end: 20020101
  2. ATIVAN [Concomitant]
  3. NAPROSYN [Concomitant]
  4. ASCORBIC ACID [Concomitant]
  5. ZOCOR [Concomitant]
  6. VITAMIN D [Concomitant]
  7. THYROID TAB [Concomitant]

REACTIONS (9)
  - CORONARY ARTERIAL STENT INSERTION [None]
  - GASTROOESOPHAGEAL REFLUX DISEASE [None]
  - HAEMORRHAGE SUBCUTANEOUS [None]
  - HOT FLUSH [None]
  - KNEE ARTHROPLASTY [None]
  - MUSCLE SPASMS [None]
  - RASH [None]
  - ROAD TRAFFIC ACCIDENT [None]
  - WEIGHT INCREASED [None]
